FAERS Safety Report 19693622 (Version 5)
Quarter: 2022Q3

REPORT INFORMATION
  Report Type: Report from Study
  Country: IT (occurrence: IT)
  Receive Date: 20210812
  Receipt Date: 20220914
  Transmission Date: 20221027
  Serious: Yes (Other)
  Sender: FDA-Public Use
  Company Number: IT-TAKEDA-2021TUS040842

PATIENT
  Age: 63 Year
  Sex: Female
  Weight: 53 kg

DRUGS (15)
  1. TEDUGLUTIDE [Suspect]
     Active Substance: TEDUGLUTIDE
     Indication: Short-bowel syndrome
     Dosage: 2.5 MILLIGRAM, QD
     Route: 042
     Dates: start: 20210131, end: 20210301
  2. TEDUGLUTIDE [Suspect]
     Active Substance: TEDUGLUTIDE
     Indication: Short-bowel syndrome
     Dosage: 2.5 MILLIGRAM, QD
     Route: 042
     Dates: start: 20210131, end: 20210301
  3. TEDUGLUTIDE [Suspect]
     Active Substance: TEDUGLUTIDE
     Indication: Short-bowel syndrome
     Dosage: 2.5 MILLIGRAM, QD
     Route: 042
     Dates: start: 20210131, end: 20210301
  4. TEDUGLUTIDE [Suspect]
     Active Substance: TEDUGLUTIDE
     Indication: Short-bowel syndrome
     Dosage: 2.5 MILLIGRAM, QD
     Route: 042
     Dates: start: 20210131, end: 20210301
  5. TEDUGLUTIDE [Suspect]
     Active Substance: TEDUGLUTIDE
     Dosage: 1.8 MILLIGRAM, QD
     Route: 042
     Dates: start: 20210302
  6. TEDUGLUTIDE [Suspect]
     Active Substance: TEDUGLUTIDE
     Dosage: 1.8 MILLIGRAM, QD
     Route: 042
     Dates: start: 20210302
  7. TEDUGLUTIDE [Suspect]
     Active Substance: TEDUGLUTIDE
     Dosage: 1.8 MILLIGRAM, QD
     Route: 042
     Dates: start: 20210302
  8. TEDUGLUTIDE [Suspect]
     Active Substance: TEDUGLUTIDE
     Dosage: 1.8 MILLIGRAM, QD
     Route: 042
     Dates: start: 20210302
  9. CHOLECALCIFEROL [Concomitant]
     Active Substance: CHOLECALCIFEROL
     Indication: Osteopenia
     Dosage: 100000 INTERNATIONAL UNIT, Q3MONTHS
     Route: 030
  10. Folina [Concomitant]
     Indication: Short-bowel syndrome
     Dosage: 999 UNK, QOD
     Route: 048
     Dates: start: 20191022
  11. ZINC SULFATE [Concomitant]
     Active Substance: ZINC SULFATE
     Indication: Short-bowel syndrome
     Dosage: 200 MILLIGRAM, QD
     Route: 048
  12. FLAGYL [Concomitant]
     Active Substance: METRONIDAZOLE\METRONIDAZOLE HYDROCHLORIDE
     Indication: Prophylaxis
     Dosage: 999 UNK, TID
     Route: 048
     Dates: start: 2021
  13. FLAGYL [Concomitant]
     Active Substance: METRONIDAZOLE\METRONIDAZOLE HYDROCHLORIDE
     Indication: Gastrointestinal disorder
  14. ASTRAZENECA COVID-19 VACCINE [Concomitant]
     Active Substance: AZD-1222
     Indication: COVID-19
     Dosage: 200 MILLIGRAM, QD
     Route: 065
  15. ASTRAZENECA COVID-19 VACCINE [Concomitant]
     Active Substance: AZD-1222
     Dosage: UNK
     Route: 065
     Dates: start: 20210315

REACTIONS (8)
  - Biliary dilatation [Not Recovered/Not Resolved]
  - Impaired gastric emptying [Recovered/Resolved]
  - Early satiety [Recovered/Resolved]
  - Lipase increased [Recovered/Resolved with Sequelae]
  - Retching [Recovered/Resolved]
  - Stoma complication [Not Recovered/Not Resolved]
  - Vomiting [Recovered/Resolved]
  - Stoma site extravasation [Recovered/Resolved]

NARRATIVE: CASE EVENT DATE: 20210101
